FAERS Safety Report 11197774 (Version 2)
Quarter: 2015Q2

REPORT INFORMATION
  Report Type: Report from Study
  Country: BE (occurrence: BE)
  Receive Date: 20150617
  Receipt Date: 20150618
  Transmission Date: 20150821
  Serious: Yes (Death, Hospitalization)
  Sender: FDA-Public Use
  Company Number: BE-ABBVIE-14P-013-1235274-00

PATIENT
  Age: 71 Year
  Sex: Male

DRUGS (6)
  1. DUODOPA [Suspect]
     Active Substance: CARBIDOPA\LEVODOPA
     Dosage: DOSE CONTINUOUSLY MONITORED AND ADAPTED
     Route: 050
     Dates: start: 20140402, end: 20140418
  2. DUODOPA [Suspect]
     Active Substance: CARBIDOPA\LEVODOPA
     Dosage: AM=4.5ML, CONTIN DOSE=2.9ML/H DURING 16H, EXTRA DOSE=1.5ML
     Route: 050
     Dates: start: 20140418
  3. DUODOPA [Suspect]
     Active Substance: CARBIDOPA\LEVODOPA
     Dosage: UNKNOWN
     Route: 050
     Dates: end: 20150521
  4. DUODOPA [Suspect]
     Active Substance: CARBIDOPA\LEVODOPA
     Dosage: AM = 2.5 ML, CD = 3.3 ML/H DURING 16H, ED = 2 ML
     Route: 050
     Dates: start: 20150610, end: 20150611
  5. DUODOPA [Suspect]
     Active Substance: CARBIDOPA\LEVODOPA
     Indication: PARKINSON^S DISEASE
     Dosage: AM=6ML, CONTIN DOSE=3.4ML/H DURING 16H, EXTRA DOSE=2ML
     Route: 050
     Dates: start: 20140331, end: 20140402
  6. DUODOPA [Suspect]
     Active Substance: CARBIDOPA\LEVODOPA
     Dosage: AM = 3.5 ML, CD = 3.3 ML/H DURING 16H, ED = 2 ML
     Route: 050
     Dates: start: 20150521, end: 20150610

REACTIONS (13)
  - Diarrhoea [Unknown]
  - On and off phenomenon [Unknown]
  - Weight decreased [Unknown]
  - Balance disorder [Unknown]
  - Dyskinesia [Not Recovered/Not Resolved]
  - Intussusception [Unknown]
  - General physical health deterioration [Unknown]
  - Hypotension [Unknown]
  - Atlantoaxial instability [Unknown]
  - Posture abnormal [Unknown]
  - Gait disturbance [Unknown]
  - Death [Fatal]
  - Shock [Unknown]

NARRATIVE: CASE EVENT DATE: 20150610
